FAERS Safety Report 10308080 (Version 2)
Quarter: 2014Q4

REPORT INFORMATION
  Report Type: Spontaneous
  Country: JP (occurrence: JP)
  Receive Date: 20140716
  Receipt Date: 20141009
  Transmission Date: 20150528
  Serious: Yes (Death)
  Sender: FDA-Public Use
  Company Number: JP-PFIZER INC-2014195632

PATIENT
  Age: 63 Year
  Sex: Female
  Weight: 61 kg

DRUGS (42)
  1. 5-FU [Suspect]
     Active Substance: FLUOROURACIL
     Indication: PANCREATIC CARCINOMA
     Dosage: 313.3 MG/M2 (500 MG/BODY), 1X/DAY
     Route: 040
     Dates: start: 20140624, end: 20140624
  2. ISOVORIN [Suspect]
     Active Substance: LEUCOVORIN CALCIUM
     Indication: PANCREATIC CARCINOMA
     Dosage: 188 MG/M2 (300 MG/BODY), 1X/DAY
     Route: 041
     Dates: start: 20140624, end: 20140624
  3. GASCON [Concomitant]
     Active Substance: DIMETHICONE
     Dosage: UNK
     Dates: start: 20140625
  4. ROPION [Concomitant]
     Active Substance: FLURBIPROFEN AXETIL
     Dosage: UNK
     Dates: start: 20140630, end: 20140703
  5. NOREPINEPHRINE [Concomitant]
     Active Substance: NOREPINEPHRINE\NOREPINEPHRINE BITARTRATE
     Dosage: UNK
     Dates: start: 20140703
  6. VENOGLOBULIN [Concomitant]
     Active Substance: HUMAN IMMUNOGLOBULIN G
     Dosage: UNK
     Dates: start: 20140703
  7. TRANSAMIN [Concomitant]
     Active Substance: TRANEXAMIC ACID
     Dosage: UNK
     Dates: start: 20140703
  8. ESLAX [Concomitant]
     Active Substance: ROCURONIUM BROMIDE
     Dosage: UNK
     Dates: start: 20140703
  9. ELPLAT [Suspect]
     Active Substance: OXALIPLATIN
     Indication: PANCREATIC CARCINOMA
     Dosage: 75.2 MG/M2 (120 MG/BODY), 1X/DAY
     Route: 041
     Dates: start: 20140624, end: 20140624
  10. 5-FU [Suspect]
     Active Substance: FLUOROURACIL
     Dosage: 2193 MG/M2 (3500 MG/BODY), DAYS 1-2
     Route: 041
     Dates: start: 20140624, end: 20140624
  11. KYTRIL [Concomitant]
     Active Substance: GRANISETRON HYDROCHLORIDE
     Dosage: UNK
     Dates: start: 20140624, end: 20140625
  12. ATARAX-P [Concomitant]
     Active Substance: HYDROXYZINE HYDROCHLORIDE
     Dosage: UNK
     Dates: start: 20140624, end: 20140625
  13. TAKEPRON [Concomitant]
     Active Substance: LANSOPRAZOLE
     Dosage: UNK
     Dates: start: 20140625
  14. MEYLON [Concomitant]
     Active Substance: SODIUM BICARBONATE
     Dosage: UNK
     Dates: start: 20140703
  15. OMEPRAL [Concomitant]
     Active Substance: OMEPRAZOLE
     Dosage: UNK
     Dates: start: 20140703
  16. DECADRON [Concomitant]
     Active Substance: DEXAMETHASONE
     Dosage: UNK
     Dates: start: 20140624, end: 20140626
  17. LENDORMIN [Concomitant]
     Active Substance: BROTIZOLAM
     Dosage: UNK
     Dates: start: 20140625
  18. PRIMPERAN [Concomitant]
     Active Substance: METOCLOPRAMIDE HYDROCHLORIDE
     Dosage: UNK
     Dates: start: 20140625
  19. LASIX [Concomitant]
     Active Substance: FUROSEMIDE
     Dosage: UNK
     Dates: start: 20140625
  20. MYSLEE [Concomitant]
     Active Substance: ZOLPIDEM TARTRATE
     Dosage: UNK
     Dates: start: 20140701
  21. INOVAN [Concomitant]
     Active Substance: DOPAMINE HYDROCHLORIDE
     Dosage: UNK
     Dates: start: 20140703
  22. GRAN [Concomitant]
     Active Substance: FILGRASTIM
     Dosage: UNK
     Dates: start: 20140703
  23. EMEND [Concomitant]
     Active Substance: APREPITANT
     Dosage: UNK
     Dates: start: 20140624, end: 20140626
  24. AMIGRAND [Concomitant]
     Dosage: UNK
     Dates: start: 20140625
  25. ALDACTONE [Concomitant]
     Active Substance: SPIRONOLACTONE
     Dosage: UNK
     Dates: start: 20140625
  26. ZYPREXA [Concomitant]
     Active Substance: OLANZAPINE
     Dosage: UNK
     Dates: start: 20140625, end: 20140626
  27. CAMPTO [Suspect]
     Active Substance: IRINOTECAN
     Indication: PANCREATIC CARCINOMA
     Dosage: 125.3 MG/M2 (200 MG/BODY), 1X/DAY
     Route: 041
     Dates: start: 20140624, end: 20140624
  28. LOXONIN [Concomitant]
     Active Substance: LOXOPROFEN SODIUM
     Dosage: UNK
     Dates: start: 20140630
  29. VOLTAREN [Concomitant]
     Active Substance: DICLOFENAC SODIUM
     Dosage: UNK
     Dates: start: 20140701, end: 20140702
  30. SOSEGON [Concomitant]
     Active Substance: PENTAZOCINE
     Dosage: UNK
     Dates: start: 20140702
  31. PROPOFOL. [Concomitant]
     Active Substance: PROPOFOL
     Dosage: UNK
     Dates: start: 20140703
  32. ADRENALINE [Concomitant]
     Active Substance: EPINEPHRINE
     Dosage: UNK
     Dates: start: 20140703
  33. ALBUMIN HUMAN [Concomitant]
     Active Substance: ALBUMIN (HUMAN)
     Dosage: UNK
     Dates: start: 20140704
  34. FUROSEMIDE. [Concomitant]
     Active Substance: FUROSEMIDE
     Dosage: UNK
     Dates: start: 20140704
  35. LOXONIN [Concomitant]
     Active Substance: LOXOPROFEN SODIUM
     Dosage: UNK
     Dates: start: 20140625
  36. GLYCERIN. [Concomitant]
     Active Substance: GLYCERIN
     Dosage: UNK
     Dates: start: 20140628
  37. FENTANYL. [Concomitant]
     Active Substance: FENTANYL
     Dosage: UNK
     Dates: start: 20140703
  38. PLATELETS [Concomitant]
     Active Substance: HUMAN PLATELET, ALLOGENIC
     Dosage: UNK
     Dates: start: 20140703
  39. NOVOLIN R [Concomitant]
     Active Substance: INSULIN HUMAN
     Dosage: UNK
     Dates: start: 20140704
  40. SERENACE [Concomitant]
     Active Substance: HALOPERIDOL
     Dosage: UNK
     Dates: start: 20140624, end: 20140625
  41. MAGMITT [Concomitant]
     Active Substance: MAGNESIUM OXIDE
     Dosage: UNK
     Dates: start: 20140630, end: 20140701
  42. SOLU-MEDROL [Concomitant]
     Active Substance: METHYLPREDNISOLONE SODIUM SUCCINATE
     Dosage: UNK
     Dates: start: 20140703

REACTIONS (11)
  - Renal failure [Fatal]
  - Headache [Recovered/Resolved]
  - Neutrophil count decreased [Fatal]
  - White blood cell count decreased [Fatal]
  - Pneumonia [Fatal]
  - Dizziness [Not Recovered/Not Resolved]
  - Malaise [Not Recovered/Not Resolved]
  - Pulmonary alveolar haemorrhage [Fatal]
  - Platelet count decreased [Fatal]
  - Diarrhoea [Not Recovered/Not Resolved]
  - Nausea [Not Recovered/Not Resolved]

NARRATIVE: CASE EVENT DATE: 2014
